FAERS Safety Report 8679403 (Version 2)
Quarter: 2012Q4

REPORT INFORMATION
  Report Type: 
  Country: JP (occurrence: None)
  Receive Date: 20120706
  Receipt Date: 20120823
  Transmission Date: 20130627
  Serious: Yes (Death)
  Sender: FDA-Public Use
  Company Number: JP-2012-15638

PATIENT
  Age: 75 Year
  Sex: Male

DRUGS (5)
  1. PLETAL [Suspect]
     Dosage: ORAL
     Route: 048
  2. UNSPECIFIED INGREDIENT [Suspect]
     Dosage: tapered from 30 mg
     Route: 048
  3. WARFARIN (WARFARIN SODIUM) [Concomitant]
  4. HEPARIN AND PREPARATIONS (HEPARIN AND PREPARATIONS) INJECTION [Concomitant]
  5. NAFAMOSTAT MESILATE (NAFAMOSTAT MESILATE) INJECTION [Concomitant]

REACTIONS (3)
  - Pneumonia [None]
  - Cerebral infarction [None]
  - Atrial fibrillation [None]
